FAERS Safety Report 6326928-3 (Version None)
Quarter: 2009Q3

REPORT INFORMATION
  Report Type: 
  Country: None (occurrence: None)
  Receive Date: 20090821
  Receipt Date: 20090814
  Transmission Date: 20100115
  Serious: Yes (Other)
  Sender: FDA-Public Use
  Company Number: RENA-1000496

PATIENT
  Age: 73 Year
  Sex: Male
  Weight: 107 kg

DRUGS (5)
  1. RENVELA [Suspect]
     Indication: HYPERPHOSPHATAEMIA
     Dosage: 1600 MG, TID, ORAL, 800 MG, TID
     Route: 048
     Dates: start: 20090615
  2. PERINDOPRIL ERBUMINE [Concomitant]
  3. AMLODIPINE [Concomitant]
  4. DOXAZOSIN MESYLATE [Concomitant]
  5. BENDROFLUAZIDE (BENDROGLUMETHIAZIDE) [Concomitant]

REACTIONS (2)
  - AORTIC ANEURYSM [None]
  - HYPOPHOSPHATAEMIA [None]
